FAERS Safety Report 7957441-5 (Version None)
Quarter: 2011Q4

REPORT INFORMATION
  Report Type: 
  Country: None (occurrence: None)
  Receive Date: 20111205
  Receipt Date: 20111201
  Transmission Date: 20120403
  Serious: Yes (Other)
  Sender: FDA-Public Use
  Company Number: US-PFIZER INC-2011098568

PATIENT
  Sex: Male

DRUGS (7)
  1. NARDIL [Suspect]
     Dosage: 4 MG, 1X/DAY
     Dates: start: 19910101
  2. PAXIL [Suspect]
     Dosage: UNK
  3. PRIMIDONE [Concomitant]
     Indication: TREMOR
     Dosage: UNK
  4. ZOLOFT [Suspect]
     Dosage: UNK
  5. ALPRAZOLAM [Suspect]
     Indication: PANIC ATTACK
     Dosage: UNK
  6. PROZAC [Suspect]
     Dosage: UNK
  7. SERZONE [Concomitant]
     Dosage: UNK

REACTIONS (13)
  - WEIGHT INCREASED [None]
  - FEELING DRUNK [None]
  - NEPHROLITHIASIS [None]
  - ACROPHOBIA [None]
  - HEAD DISCOMFORT [None]
  - BACK PAIN [None]
  - ACTIVITIES OF DAILY LIVING IMPAIRED [None]
  - DRUG INEFFECTIVE [None]
  - LETHARGY [None]
  - NERVOUS SYSTEM DISORDER [None]
  - HEART RATE INCREASED [None]
  - PANIC ATTACK [None]
  - CHEST X-RAY ABNORMAL [None]
